FAERS Safety Report 6876295-1 (Version None)
Quarter: 2010Q3

REPORT INFORMATION
  Report Type: 
  Country: None (occurrence: None)
  Receive Date: 20100727
  Receipt Date: 20100716
  Transmission Date: 20110219
  Serious: Yes (Other)
  Sender: FDA-Public Use
  Company Number: B0666874A

PATIENT
  Age: 58 Year
  Sex: Male
  Weight: 92.4 kg

DRUGS (1)
  1. OMACOR [Suspect]
     Dosage: 1000MG PER DAY
     Route: 048
     Dates: start: 20091109, end: 20100501

REACTIONS (2)
  - OFF LABEL USE [None]
  - VISION BLURRED [None]
